FAERS Safety Report 7651716-5 (Version None)
Quarter: 2011Q3

REPORT INFORMATION
  Report Type: 
  Country: None (occurrence: None)
  Receive Date: 20110802
  Receipt Date: 20110729
  Transmission Date: 20111222
  Serious: Yes (Hospitalization, Other)
  Sender: FDA-Public Use
  Company Number: US-AMGEN-USACT2011026591

PATIENT
  Age: 65 Year
  Sex: Female
  Weight: 111.4 kg

DRUGS (15)
  1. LORTAB [Concomitant]
     Dosage: UNK UNK, PRN
     Route: 048
  2. PANITUMUMAB [Suspect]
     Indication: RECTAL CANCER METASTATIC
     Dosage: 6 MG/KG, QWK
     Dates: start: 20110415
  3. VITAMIN B-12 [Concomitant]
     Dosage: 1000 A?G, UNK
     Route: 048
  4. ALBUTEROL SULFATE AUTOHALER [Concomitant]
     Dosage: UNK UNK, Q4H
  5. LYRICA [Concomitant]
     Dosage: 300 MG, UNK
     Route: 048
  6. LEVOTHYROXINE SODIUM [Concomitant]
     Dosage: 0.075 MG, UNK
     Route: 048
  7. OXYBUTYNIN [Concomitant]
     Dosage: 5 MG, UNK
     Route: 048
  8. DECITABINE [Concomitant]
     Indication: COLON CANCER METASTATIC
     Dosage: 45 MG/M2, QWK
     Dates: start: 20110408
  9. LEVAQUIN [Concomitant]
     Dosage: 500 MG, UNK
     Route: 048
     Dates: end: 20110506
  10. GEMFIBROZIL [Concomitant]
     Dosage: 600 MG, UNK
     Route: 048
  11. AMBIEN [Concomitant]
     Dosage: 12.5 MG, PRN
     Route: 048
  12. RITALIN [Concomitant]
     Dosage: 5 MG, TID
     Route: 048
  13. PERCOCET [Concomitant]
     Dosage: UNK
     Route: 048
  14. METOPROLOL SUCCINATE [Concomitant]
     Dosage: 50 MG, UNK
     Route: 048
  15. CANDESARTAN W/HYDROCHLOROTHIAZIDE [Concomitant]
     Dosage: UNK
     Route: 048

REACTIONS (12)
  - HYPOMAGNESAEMIA [None]
  - NEUROPATHY PERIPHERAL [None]
  - PHOTOSENSITIVITY REACTION [None]
  - URINARY TRACT INFECTION [None]
  - DECREASED APPETITE [None]
  - FEELING COLD [None]
  - PNEUMONIA [None]
  - MUCOSAL INFLAMMATION [None]
  - HYPOCALCAEMIA [None]
  - GASTROINTESTINAL HAEMORRHAGE [None]
  - RHINITIS [None]
  - FATIGUE [None]
